FAERS Safety Report 7626820-8 (Version None)
Quarter: 2011Q3

REPORT INFORMATION
  Report Type: 
  Country: None (occurrence: None)
  Receive Date: 20110721
  Receipt Date: 20110712
  Transmission Date: 20111222
  Serious: Yes (Hospitalization, Other)
  Sender: FDA-Public Use
  Company Number: US-BAYER-201020190NA

PATIENT
  Age: 22 Year
  Sex: Female
  Weight: 95.238 kg

DRUGS (14)
  1. VISTARIL [Concomitant]
  2. WARFARIN SODIUM [Concomitant]
  3. TRAMADOL HCL [Concomitant]
     Dosage: 50 MG, UNK
     Route: 048
  4. HYDROCODONE BITARTRATE AND ACETAMINOPHEN [Concomitant]
     Indication: PAIN
     Route: 048
  5. PRENATAL PLUS IRON [Concomitant]
     Route: 048
  6. MOTRIN [Concomitant]
  7. HYDROMORPHONE HCL [Concomitant]
  8. YAZ [Suspect]
     Indication: CONTRACEPTION
     Dosage: AS USED DOSE: UNK
     Route: 048
     Dates: start: 20090301, end: 20090917
  9. LEVOTHYROXINE SODIUM [Concomitant]
     Indication: HYPOTHYROIDISM
     Dosage: 150 UNK, UNK
     Route: 048
     Dates: start: 20070801
  10. ZOLOFT [Concomitant]
  11. YASMIN [Suspect]
     Indication: CONTRACEPTION
     Dosage: AS USED DOSE: UNK
     Route: 048
     Dates: start: 20090301, end: 20090917
  12. SULFAMETHOXAZOLE AND TRIMETHOPRIM DOUBLE STRENGTH [Concomitant]
     Route: 048
  13. PERCOCET [Concomitant]
  14. OXYCODONE HCL AND ACETAMINOPHEN [Concomitant]

REACTIONS (1)
  - DEEP VEIN THROMBOSIS [None]
